FAERS Safety Report 8892005 (Version 1)
Quarter: 2012Q4

REPORT INFORMATION
  Report Type: Spontaneous
  Country: US (occurrence: None)
  Receive Date: 20121031
  Receipt Date: 20121031
  Transmission Date: 20130627
  Serious: Yes (Other)
  Sender: FDA-Public Use
  Company Number: 120469

PATIENT
  Sex: Female

DRUGS (1)
  1. SUPREP BOWEL PREP KIT [Suspect]
     Indication: COLONOSCOPY
     Dosage: 1 X 6OZ BOTTLE/1X/PO
     Route: 048
     Dates: start: 20121017

REACTIONS (6)
  - Nausea [None]
  - Asthenia [None]
  - Dizziness [None]
  - Abdominal pain [None]
  - Blood pressure decreased [None]
  - Diarrhoea [None]
